FAERS Safety Report 18565763 (Version 2)
Quarter: 2021Q1

REPORT INFORMATION
  Report Type: Spontaneous
  Country: US (occurrence: US)
  Receive Date: 20201201
  Receipt Date: 20210131
  Transmission Date: 20210419
  Serious: Yes (Other)
  Sender: FDA-Public Use
  Company Number: US-PURDUE-USA-2020-0178179

PATIENT
  Sex: Male

DRUGS (1)
  1. OXYCONTIN [Suspect]
     Active Substance: OXYCODONE HYDROCHLORIDE
     Indication: BACK PAIN
     Route: 048

REACTIONS (13)
  - Diverticulitis [Unknown]
  - Large intestine polyp [Unknown]
  - Dyspnoea [Unknown]
  - Drug dependence [Unknown]
  - Osteoarthritis [Unknown]
  - Faecaloma [Unknown]
  - Tooth loss [Unknown]
  - Lung disorder [Unknown]
  - Constipation [Unknown]
  - Weight increased [Unknown]
  - Gait inability [Unknown]
  - Cardiac arrest [Unknown]
  - Aphasia [Unknown]
